FAERS Safety Report 5781902-0 (Version None)
Quarter: 2008Q2

REPORT INFORMATION
  Report Type: 
  Country: None (occurrence: None)
  Receive Date: 20080623
  Receipt Date: 20080617
  Transmission Date: 20081010
  Serious: Yes (Other)
  Sender: FDA-Public Use
  Company Number: A0734240A

PATIENT
  Age: 58 Year
  Sex: Female
  Weight: 56.4 kg

DRUGS (6)
  1. WELLBUTRIN SR [Suspect]
     Indication: DRUG USE FOR UNKNOWN INDICATION
     Dosage: 150MG PER DAY
     Route: 048
     Dates: start: 20050101, end: 20050101
  2. PROVIGIL [Suspect]
     Indication: MULTIPLE SCLEROSIS
     Dosage: 200MG UNKNOWN
     Route: 065
     Dates: start: 20030101, end: 20080530
  3. MULTI-VITAMIN [Concomitant]
  4. SYNTHROID [Concomitant]
     Dosage: .25UG PER DAY
     Dates: start: 20020101
  5. NORVASC [Concomitant]
     Dosage: 5MG PER DAY
     Dates: start: 20030301
  6. ASPIRIN [Concomitant]
     Dosage: 81MG PER DAY
     Dates: start: 20030101

REACTIONS (8)
  - ANXIETY [None]
  - CHILLS [None]
  - DEPRESSION [None]
  - DRUG INTERACTION [None]
  - DYSTONIA [None]
  - IRRITABILITY [None]
  - MOOD SWINGS [None]
  - SUICIDAL IDEATION [None]
